FAERS Safety Report 9270325 (Version 2)
Quarter: 2013Q2

REPORT INFORMATION
  Report Type: Spontaneous
  Country: JP (occurrence: JP)
  Receive Date: 20130503
  Receipt Date: 20130515
  Transmission Date: 20140414
  Serious: Yes (Hospitalization, Other)
  Sender: FDA-Public Use
  Company Number: JP-ABBOTT-13X-087-1075780-00

PATIENT
  Age: 81 Year
  Sex: Female
  Weight: 34 kg

DRUGS (11)
  1. KLARICID [Suspect]
     Indication: MYCOBACTERIUM AVIUM COMPLEX INFECTION
     Route: 048
     Dates: start: 20100705, end: 20100805
  2. AMIKACIN SULFATE [Suspect]
     Indication: ATYPICAL MYCOBACTERIAL INFECTION
     Route: 041
     Dates: start: 20100707, end: 20100801
  3. RIFAMPICIN [Suspect]
     Indication: ATYPICAL MYCOBACTERIAL INFECTION
     Route: 048
     Dates: start: 20100705, end: 20100805
  4. ESANBUTOL [Suspect]
     Indication: ATYPICAL MYCOBACTERIAL INFECTION
     Route: 048
     Dates: start: 20100705, end: 20100805
  5. VOLTAREN [Suspect]
     Indication: PRODUCT USED FOR UNKNOWN INDICATION
     Route: 054
  6. OMEPRAZOLE [Concomitant]
     Indication: GASTRITIS
     Route: 048
     Dates: start: 20100807
  7. PIOGLITAZONE HYDROCHLORIDE [Concomitant]
     Indication: DIABETES MELLITUS
     Route: 048
     Dates: start: 20100807
  8. TIZANIDINE HYDROCHLORIDE [Concomitant]
     Indication: MUSCULOSKELETAL STIFFNESS
     Route: 048
     Dates: start: 20100807
  9. AMLODIPINE BESILATE [Concomitant]
     Indication: HYPERTENSION
     Route: 048
     Dates: start: 20100708
  10. ENALAPRIL MALEATE [Concomitant]
     Indication: HYPERTENSION
     Route: 048
     Dates: start: 20100708
  11. MITIGLINIDE CALCIUM [Concomitant]
     Indication: DIABETES MELLITUS
     Route: 048
     Dates: start: 20100807

REACTIONS (5)
  - Device related infection [Unknown]
  - Hepatic function abnormal [Recovering/Resolving]
  - Sepsis [Unknown]
  - Gastrointestinal haemorrhage [Recovered/Resolved]
  - Septic shock [Recovered/Resolved]
